FAERS Safety Report 9229121 (Version 2)
Quarter: 2013Q3

REPORT INFORMATION
  Report Type: Report from Study
  Country: US (occurrence: US)
  Receive Date: 20130412
  Receipt Date: 20130704
  Transmission Date: 20140515
  Serious: Yes (Death)
  Sender: FDA-Public Use
  Company Number: US-ASTRAZENECA-2013SE23497

PATIENT
  Age: 816 Month
  Sex: Female

DRUGS (2)
  1. NEXIUM [Suspect]
     Route: 048
     Dates: start: 201208
  2. PROGRAF [Concomitant]
     Indication: IMMUNOSUPPRESSION

REACTIONS (1)
  - Septic shock [Fatal]
